FAERS Safety Report 8144227-4 (Version None)
Quarter: 2012Q1

REPORT INFORMATION
  Report Type: 
  Country: None (occurrence: None)
  Receive Date: 20120217
  Receipt Date: 20120209
  Transmission Date: 20120608
  Serious: Yes (Other)
  Sender: FDA-Public Use
  Company Number: US-SANOFI-AVENTIS-2011SA009961

PATIENT
  Age: 74 Year
  Sex: Male
  Weight: 93.6 kg

DRUGS (16)
  1. VYTORIN [Concomitant]
     Route: 048
     Dates: start: 20110118
  2. FISH OIL [Concomitant]
     Route: 048
     Dates: start: 20100906, end: 20110111
  3. SIMVASTATIN [Concomitant]
     Route: 048
     Dates: start: 20060101
  4. ASPIRIN [Concomitant]
     Route: 048
     Dates: start: 20060101
  5. PIOGLITAZONE HYDROCHLORIDE [Concomitant]
     Route: 048
     Dates: start: 20020101
  6. FISH OIL [Concomitant]
     Route: 048
     Dates: start: 20110112
  7. WARFARIN [Concomitant]
     Route: 048
     Dates: start: 20100905
  8. LOTENSIN [Concomitant]
     Route: 048
     Dates: start: 19990601
  9. ISOSORBIDE DINITRATE [Concomitant]
     Route: 048
     Dates: start: 19990601
  10. DRONEDARONE HCL [Suspect]
     Indication: ATRIAL FIBRILLATION
     Route: 065
     Dates: start: 20110112, end: 20110209
  11. METOPROLOL TARTRATE [Concomitant]
     Route: 048
     Dates: start: 20110113
  12. METOPROLOL TARTRATE [Concomitant]
     Route: 048
     Dates: start: 20100904, end: 20110112
  13. TAMSULOSIN HCL [Concomitant]
     Route: 048
     Dates: start: 20020101
  14. NIASPAN [Concomitant]
     Route: 048
     Dates: start: 20100906
  15. OMEPRAZOLE [Concomitant]
     Route: 048
     Dates: start: 19990601
  16. ASCORBIC ACID [Concomitant]
     Route: 048
     Dates: start: 19990101

REACTIONS (1)
  - CARDIAC FAILURE CONGESTIVE [None]
